FAERS Safety Report 11649750 (Version 6)
Quarter: 2017Q3

REPORT INFORMATION
  Report Type: Report from Study
  Country: BE (occurrence: BE)
  Receive Date: 20151021
  Receipt Date: 20170918
  Transmission Date: 20171127
  Serious: Yes (Hospitalization)
  Sender: FDA-Public Use
  Company Number: BE-TEVA-601141ISR

PATIENT
  Age: 77 Year
  Sex: Male

DRUGS (18)
  1. 5-FLUOROURACIL [Suspect]
     Active Substance: FLUOROURACIL
     Indication: COLORECTAL CANCER
     Dosage: OVER 15 MINUTE, DAY 1 O F EACH 14-DAY CYCLE (400 MG/M2 )
     Route: 042
     Dates: start: 20150805, end: 20150907
  2. ATROPINE. [Concomitant]
     Active Substance: ATROPINE
     Indication: PROPHYLAXIS
     Dosage: ONCE, EVERY 2 WEEKS BEFORE CHEMOTHERAPY (0.5 MG)
     Route: 058
     Dates: start: 20150805, end: 20150907
  3. NEULASTA [Concomitant]
     Active Substance: PEGFILGRASTIM
     Indication: NEUTROPENIA
     Dosage: ONCE , EVERY 2 WEEKS BEFORE CHEMOTHERAPY (6 MG)
     Route: 058
     Dates: start: 20150829, end: 20150829
  4. PYRIDOXINE [Concomitant]
     Active Substance: PYRIDOXINE
     Indication: PERIPHERAL SWELLING
  5. PANTOMED (PANTOPRAZOLE SODIUM) [Concomitant]
     Active Substance: PANTOPRAZOLE SODIUM
     Indication: HIATUS HERNIA
     Dosage: 40 MILLIGRAM DAILY;
     Route: 048
     Dates: start: 20150708
  6. MOUTH WASH [Concomitant]
     Indication: STOMATITIS
     Dosage: 20 ML DAILY;
     Route: 002
     Dates: start: 20150805
  7. IMODIUM [Concomitant]
     Active Substance: LOPERAMIDE HYDROCHLORIDE
     Indication: PROPHYLAXIS AGAINST DIARRHOEA
     Route: 048
     Dates: start: 20150803
  8. ALOXI [Concomitant]
     Active Substance: PALONOSETRON HYDROCHLORIDE
     Indication: PROPHYLAXIS OF NAUSEA AND VOMITING
     Dosage: ONCE, EVERY 2 WEEKS BEFORE CHEMOTHERAPY (0.25 MG)
     Route: 042
     Dates: start: 20150805, end: 20150907
  9. PYRIDOXINE [Concomitant]
     Active Substance: PYRIDOXINE
     Indication: RASH
  10. IRINOTECAN [Suspect]
     Active Substance: IRINOTECAN
     Indication: COLORECTAL CANCER
     Dosage: DAY 1 OF EACH 14-DAY CYCLE (180 MG/M2)
     Route: 042
     Dates: start: 20150805, end: 20150907
  11. 5-FLUOROURACIL [Suspect]
     Active Substance: FLUOROURACIL
     Dosage: OVER 46 HOURS, DAY 1 OT EACH 14-DAY CYCLE (2400 MG/M2)
     Route: 042
     Dates: start: 20150805, end: 20150909
  12. ABT-888 (VELIPARIB) (BLINDED) [Suspect]
     Active Substance: VELIPARIB
     Indication: COLORECTAL CANCER
     Dosage: DAYS -2 THROUGH 5 OF EACH 14-DAY CYCLE (2 IN 1 D)
     Route: 048
     Dates: start: 20150803, end: 20150911
  13. LEUCOVORIN. [Concomitant]
     Active Substance: LEUCOVORIN
     Indication: COLORECTAL CANCER
     Dosage: DAY 1 OF EACH 14-DAY CYCLE (400 MG/M2)
     Route: 042
     Dates: start: 20150805, end: 20150907
  14. SOLUMEOROL [Concomitant]
     Indication: PROPHYLAXIS
     Dosage: ONCE, EVERY 2 WEEKS BEFORE CHEMOTHERAPY (90 MG)
     Route: 042
     Dates: start: 20150805, end: 20150907
  15. PYRIDOXINE [Concomitant]
     Active Substance: PYRIDOXINE
     Indication: PROPHYLAXIS
     Dosage: 250 MILLIGRAM DAILY;
     Route: 048
     Dates: start: 20150805
  16. BEVACIZUMAB. [Suspect]
     Active Substance: BEVACIZUMAB
     Indication: COLORECTAL CANCER
     Dosage: DAY 1 OF EACH 14-DAY CYCLE (5 MG/KG)
     Route: 042
     Dates: start: 20150805, end: 20150907
  17. PYRIDOXINE [Concomitant]
     Active Substance: PYRIDOXINE
     Indication: RASH
  18. PYRIDOXINE [Concomitant]
     Active Substance: PYRIDOXINE
     Indication: PERIPHERAL SWELLING

REACTIONS (4)
  - Peritonitis [Unknown]
  - Enteritis [Recovered/Resolved]
  - Intestinal perforation [Unknown]
  - Septic shock [Unknown]

NARRATIVE: CASE EVENT DATE: 20150916
